FAERS Safety Report 4359319-5 (Version None)
Quarter: 2004Q2

REPORT INFORMATION
  Report Type: 
  Country: None (occurrence: None)
  Receive Date: 20040517
  Receipt Date: 20040517
  Transmission Date: 20050107
  Serious: Yes (Life-Threatening, Hospitalization)
  Sender: FDA-Public Use
  Company Number: None

PATIENT
  Age: 48 Year
  Sex: Male
  Weight: 84.369 kg

DRUGS (6)
  1. CLOZAPINE [Suspect]
     Indication: SCHIZOPHRENIA, UNDIFFERENTIATED TYPE
     Dosage: 475 MG PO (200AM +275 MG HS)
     Route: 048
     Dates: start: 19981211, end: 20040406
  2. RANITIDINE [Concomitant]
  3. ALBUTEROL [Concomitant]
  4. ATORVASTATIN CALCIUM [Concomitant]
  5. PAROXETINE HCL [Concomitant]
  6. ACETAMINOPHEN [Concomitant]

REACTIONS (1)
  - AGRANULOCYTOSIS [None]
